FAERS Safety Report 8546158 (Version 2)
Quarter: 2012Q4

REPORT INFORMATION
  Report Type: 
  Country: FR (occurrence: FR)
  Receive Date: 20120504
  Receipt Date: 20121130
  Transmission Date: 20130627
  Serious: Yes (Hospitalization)
  Sender: FDA-Public Use
  Company Number: FR-JNJFOC-20120414028

PATIENT
  Age: 62 Year
  Sex: Female

DRUGS (5)
  1. IXPRIM [Suspect]
     Indication: PROCEDURAL PAIN
     Route: 048
     Dates: start: 20120127, end: 20120326
  2. LEVOTHYROX [Concomitant]
     Indication: HYPOTHYROIDISM
     Route: 048
  3. LEVOTHYROX [Concomitant]
     Indication: HYPOTHYROIDISM
     Route: 048
  4. TAHOR [Concomitant]
     Indication: PRODUCT USED FOR UNKNOWN INDICATION
     Route: 048
     Dates: start: 201203
  5. TEMESTA [Concomitant]
     Indication: PRODUCT USED FOR UNKNOWN INDICATION
     Route: 048
     Dates: start: 20120127

REACTIONS (9)
  - Atrial fibrillation [Unknown]
  - Palpitations [Recovering/Resolving]
  - Atrial fibrillation [Recovering/Resolving]
  - Dizziness [Unknown]
  - Loss of consciousness [Recovering/Resolving]
  - Arrhythmia [Recovering/Resolving]
  - Pain in extremity [Recovering/Resolving]
  - Malaise [Recovered/Resolved]
  - Adverse event [Recovering/Resolving]
